APPROVED DRUG PRODUCT: TEMOZOLOMIDE
Active Ingredient: TEMOZOLOMIDE
Strength: 250MG
Dosage Form/Route: CAPSULE;ORAL
Application: A203691 | Product #006 | TE Code: AB
Applicant: AMNEAL PHARMACEUTICALS
Approved: May 8, 2015 | RLD: No | RS: Yes | Type: RX